FAERS Safety Report 6114523-0 (Version None)
Quarter: 2009Q1

REPORT INFORMATION
  Report Type: 
  Country: None (occurrence: None)
  Receive Date: 20090313
  Receipt Date: 20090302
  Transmission Date: 20090719
  Serious: Yes (Life-Threatening, Hospitalization, Other)
  Sender: FDA-Public Use
  Company Number: CA-ROCHE-617810

PATIENT
  Age: 22 Year
  Sex: Male

DRUGS (2)
  1. ACCUTANE [Suspect]
     Route: 048
     Dates: start: 20000301, end: 20000601
  2. CYCLOPHOSPHAMIDE [Suspect]
     Indication: WEGENER'S GRANULOMATOSIS
     Route: 048
     Dates: start: 20000101

REACTIONS (14)
  - BEDRIDDEN [None]
  - DEHYDRATION [None]
  - EATING DISORDER [None]
  - EPISTAXIS [None]
  - FLUID INTAKE REDUCED [None]
  - HEADACHE [None]
  - HEPATIC FUNCTION ABNORMAL [None]
  - HEPATOMEGALY [None]
  - INFERTILITY MALE [None]
  - KIDNEY INFECTION [None]
  - LOSS OF CONSCIOUSNESS [None]
  - SPLENIC INFARCTION [None]
  - SPLENOMEGALY [None]
  - WEGENER'S GRANULOMATOSIS [None]
